FAERS Safety Report 25267868 (Version 2)
Quarter: 2025Q2

REPORT INFORMATION
  Report Type: Spontaneous
  Country: US (occurrence: US)
  Receive Date: 20250505
  Receipt Date: 20250515
  Transmission Date: 20250717
  Serious: Yes (Other)
  Sender: TEVA
  Company Number: US-TEVA-VS-3327425

PATIENT
  Age: 62 Year
  Sex: Female

DRUGS (1)
  1. ESCITALOPRAM [Suspect]
     Active Substance: ESCITALOPRAM OXALATE
     Indication: Depression
     Route: 065
     Dates: start: 2007

REACTIONS (3)
  - Drug-induced liver injury [Recovered/Resolved]
  - Fibrosis [Unknown]
  - Metabolic dysfunction-associated steatohepatitis [Unknown]
